FAERS Safety Report 5811100-3 (Version None)
Quarter: 2008Q3

REPORT INFORMATION
  Report Type: 
  Country: None (occurrence: None)
  Receive Date: 20080710
  Receipt Date: 20080630
  Transmission Date: 20090109
  Serious: Yes (Hospitalization)
  Sender: FDA-Public Use
  Company Number: TPG2008A00966

PATIENT
  Age: 43 Year
  Sex: Female

DRUGS (3)
  1. ACTOS [Suspect]
     Indication: TYPE 2 DIABETES MELLITUS
     Dosage: 15 MG (15 MG, 1 IN 1 D), PER ORAL
     Route: 048
     Dates: end: 20080528
  2. DEPAKINE (VALPROIC ACID, VALPROATE SODIUM) [Suspect]
     Indication: EPILEPSY
     Dosage: ACIDUM VALPROICUM 145 MG, NATRII VALPROAS 333 MG, ENTSPRICHT 500 MG NATRIUMVALPROAT  PER ORAL
     Route: 048
     Dates: start: 20000101, end: 20080528
  3. DIASTABOL (MIGLITOL) [Concomitant]

REACTIONS (4)
  - ABORTION INDUCED [None]
  - DRUG EXPOSURE DURING PREGNANCY [None]
  - FEAR OF DISEASE [None]
  - UNINTENDED PREGNANCY [None]
